FAERS Safety Report 5844721-2 (Version None)
Quarter: 2008Q3

REPORT INFORMATION
  Report Type: 
  Country: None (occurrence: None)
  Receive Date: 20080812
  Receipt Date: 20080728
  Transmission Date: 20090109
  Serious: Yes (Hospitalization)
  Sender: FDA-Public Use
  Company Number: US024224

PATIENT
  Age: 59 Year
  Sex: Male
  Weight: 74 kg

DRUGS (9)
  1. ACTIQ [Suspect]
     Indication: PAIN
     Dosage: 400 UG PRN BUCCAL
     Route: 002
     Dates: start: 20080625, end: 20080626
  2. FENTANYL-25 [Suspect]
     Dosage: 25 UG EVERY 72 HOURS Q1HR TRANSDERMAL
     Route: 062
     Dates: start: 20080626, end: 20080626
  3. IMPORTAL [Concomitant]
  4. OXYNORM [Concomitant]
  5. BISACODYL [Concomitant]
  6. DICLOFENAC [Concomitant]
  7. ASCAL CARDIO [Concomitant]
  8. MICROLAX [Concomitant]
  9. NORTRIPTYLINE HCL [Concomitant]

REACTIONS (7)
  - ABDOMINAL DISTENSION [None]
  - CONFUSIONAL STATE [None]
  - FLATULENCE [None]
  - HALLUCINATION [None]
  - MUSCLE SPASMS [None]
  - SOMNOLENCE [None]
  - TREMOR [None]
